FAERS Safety Report 6605148-9 (Version None)
Quarter: 2010Q1

REPORT INFORMATION
  Report Type: 
  Country: None (occurrence: None)
  Receive Date: 20100226
  Receipt Date: 20100219
  Transmission Date: 20100710
  Serious: Yes (Hospitalization)
  Sender: FDA-Public Use
  Company Number: US-ELI_LILLY_AND_COMPANY-US201002006220

PATIENT
  Age: 71 Year
  Sex: Male

DRUGS (2)
  1. HUMULIN R [Suspect]
     Indication: DIABETES MELLITUS
     Dosage: 21 U, OTHER
  2. HUMULIN R [Suspect]
     Dosage: 10 U, EACH EVENING

REACTIONS (1)
  - OEDEMA PERIPHERAL [None]
